FAERS Safety Report 6640015-6 (Version None)
Quarter: 2010Q1

REPORT INFORMATION
  Report Type: 
  Country: None (occurrence: None)
  Receive Date: 20100318
  Receipt Date: 20100308
  Transmission Date: 20100710
  Serious: Yes (Other)
  Sender: FDA-Public Use
  Company Number: PHHY2010DE14233

PATIENT
  Age: 68 Year
  Sex: Female

DRUGS (1)
  1. ESTRADERM [Suspect]
     Indication: HORMONE REPLACEMENT THERAPY
     Dosage: UNK
     Route: 062

REACTIONS (3)
  - ANGINA PECTORIS [None]
  - CARDIAC DISCOMFORT [None]
  - HYPERHIDROSIS [None]
